FAERS Safety Report 4823545-9 (Version None)
Quarter: 2005Q4

REPORT INFORMATION
  Report Type: 
  Country: None (occurrence: None)
  Receive Date: 20051031
  Receipt Date: 20051019
  Transmission Date: 20060501
  Serious: Yes (Hospitalization)
  Sender: FDA-Public Use
  Company Number: 2005-01748

PATIENT
  Age: 71 Year
  Sex: Male

DRUGS (1)
  1. IMMUCYST [Suspect]
     Indication: BLADDER CANCER
     Dosage: (81.0 MG), I.VES., BLADDER
     Route: 043
     Dates: start: 20050808, end: 20050822

REACTIONS (9)
  - BLOOD URINE PRESENT [None]
  - BOVINE TUBERCULOSIS [None]
  - HEPATIC FUNCTION ABNORMAL [None]
  - HEPATOTOXICITY [None]
  - INJURY [None]
  - INTERSTITIAL LUNG DISEASE [None]
  - PROCEDURAL COMPLICATION [None]
  - PYREXIA [None]
  - URINARY BLADDER HAEMORRHAGE [None]
